FAERS Safety Report 6221288-0 (Version None)
Quarter: 2009Q2

REPORT INFORMATION
  Report Type: 
  Country: None (occurrence: None)
  Receive Date: 20090610
  Receipt Date: 20090601
  Transmission Date: 20091009
  Serious: Yes (Other)
  Sender: FDA-Public Use
  Company Number: US-BRISTOL-MYERS SQUIBB COMPANY-14647713

PATIENT
  Age: 55 Year
  Sex: Male

DRUGS (3)
  1. TRAZODONE HCL [Suspect]
     Indication: MAJOR DEPRESSION
  2. ZOLOFT [Suspect]
     Indication: MAJOR DEPRESSION
  3. TRAMADOL HCL [Suspect]
     Indication: ARTHRALGIA

REACTIONS (2)
  - DRUG ABUSE [None]
  - SEROTONIN SYNDROME [None]
